FAERS Safety Report 13704253 (Version 1)
Quarter: 2017Q2

REPORT INFORMATION
  Report Type: Spontaneous
  Country: US (occurrence: US)
  Receive Date: 20170630
  Receipt Date: 20170630
  Transmission Date: 20170830
  Serious: Yes (Other)
  Sender: FDA-Public Use
  Company Number: US-ENDO PHARMACEUTICALS INC-2016-003724

PATIENT
  Sex: Female
  Weight: 59.02 kg

DRUGS (5)
  1. LORAZEPAM TABLETS 2MG [Suspect]
     Active Substance: LORAZEPAM
     Route: 065
     Dates: start: 201508, end: 201508
  2. NEURONTIN [Concomitant]
     Active Substance: GABAPENTIN
     Indication: SLEEP DISORDER
     Route: 065
  3. ALPRAZOLAM TABLETS [Concomitant]
     Active Substance: ALPRAZOLAM
     Indication: PRODUCT USED FOR UNKNOWN INDICATION
     Route: 065
  4. LORAZEPAM TABLETS 2MG [Suspect]
     Active Substance: LORAZEPAM
     Indication: SLEEP DISORDER
     Route: 065
     Dates: start: 2010, end: 201508
  5. LORAZEPAM TABLETS 2MG [Suspect]
     Active Substance: LORAZEPAM
     Dosage: TAPERED DOSE
     Route: 065
     Dates: start: 201508, end: 201512

REACTIONS (3)
  - Withdrawal syndrome [Not Recovered/Not Resolved]
  - Intentional product misuse [Recovered/Resolved]
  - Off label use [Recovered/Resolved]

NARRATIVE: CASE EVENT DATE: 2010
